FAERS Safety Report 8740855 (Version 2)
Quarter: 2013Q4

REPORT INFORMATION
  Report Type: Spontaneous
  Country: PH (occurrence: PH)
  Receive Date: 20120823
  Receipt Date: 20131105
  Transmission Date: 20140711
  Serious: Yes (Other)
  Sender: FDA-Public Use
  Company Number: PH-009507513-1208PHL006656

PATIENT
  Age: 33 Year
  Sex: Female

DRUGS (1)
  1. PREGNYL [Suspect]
     Dosage: UNK
     Dates: start: 20120803

REACTIONS (3)
  - Anaphylactic reaction [Recovering/Resolving]
  - Asthma [Recovered/Resolved]
  - Petechiae [Recovered/Resolved]
